FAERS Safety Report 8165094-9 (Version None)
Quarter: 2012Q1

REPORT INFORMATION
  Report Type: 
  Country: None (occurrence: None)
  Receive Date: 20120227
  Receipt Date: 20120216
  Transmission Date: 20120608
  Serious: Yes (Death, Hospitalization, Other)
  Sender: FDA-Public Use
  Company Number: AR-AMGEN-ARGSP2012005327

PATIENT
  Age: 50 Year
  Sex: Female

DRUGS (5)
  1. ENBREL [Suspect]
     Indication: RHEUMATOID ARTHRITIS
     Dosage: 25 MG, 2X/WEEK
     Route: 058
     Dates: start: 20040401, end: 20110701
  2. ANTIACID                           /00673601/ [Concomitant]
     Dosage: UNK
  3. DELTASONE                          /00044701/ [Concomitant]
     Dosage: UNK
  4. DICLOFENAC SODIUM [Concomitant]
     Dosage: UNK
  5. T4 [Concomitant]
     Dosage: UNK

REACTIONS (4)
  - MYOCARDIAL INFARCTION [None]
  - PULMONARY OEDEMA [None]
  - GASTROINTESTINAL HAEMORRHAGE [None]
  - CARDIOMEGALY [None]
